FAERS Safety Report 4547990-4 (Version None)
Quarter: 2004Q4

REPORT INFORMATION
  Report Type: 
  Country: None (occurrence: None)
  Receive Date: 20041220
  Receipt Date: 20041008
  Transmission Date: 20050328
  Serious: Yes (Hospitalization, Other)
  Sender: FDA-Public Use
  Company Number: USA041080589

PATIENT
  Age: 63 Year
  Sex: Female
  Weight: 110 kg

DRUGS (4)
  1. INSULIN [Suspect]
     Indication: DIABETES MELLITUS
     Dates: start: 19740101, end: 19990101
  2. HUMULIN 70/30 [Suspect]
     Indication: DIABETES MELLITUS
     Dosage: 12 U/2 DAY
     Dates: start: 19990101
  3. HUMULIN R [Suspect]
     Indication: DIABETES MELLITUS
     Dosage: 10 U/4 DAY
     Dates: start: 19990101
  4. METFORMIN HCL [Concomitant]

REACTIONS (20)
  - BLOOD GLUCOSE INCREASED [None]
  - BREAST CANCER [None]
  - BREAST MASS [None]
  - CARDIAC FAILURE CONGESTIVE [None]
  - CATARACT [None]
  - CHRONIC OBSTRUCTIVE AIRWAYS DISEASE [None]
  - FEELING ABNORMAL [None]
  - GLAUCOMA [None]
  - HEART RATE INCREASED [None]
  - HYPERTENSION [None]
  - MACULAR DEGENERATION [None]
  - MACULAR SCAR [None]
  - OEDEMA PERIPHERAL [None]
  - PARKINSON'S DISEASE [None]
  - POST PROCEDURAL COMPLICATION [None]
  - SLEEP APNOEA SYNDROME [None]
  - TREMOR [None]
  - VISUAL ACUITY REDUCED [None]
  - VISUAL DISTURBANCE [None]
  - WEIGHT INCREASED [None]
